FAERS Safety Report 5574988-X (Version None)
Quarter: 2007Q4

REPORT INFORMATION
  Report Type: 
  Country: None (occurrence: None)
  Receive Date: 20071227
  Receipt Date: 20071221
  Transmission Date: 20080405
  Serious: Yes (Other)
  Sender: FDA-Public Use
  Company Number: B0500892A

PATIENT
  Age: 41 Year
  Sex: Male

DRUGS (3)
  1. LAMICTAL [Suspect]
     Indication: EPILEPSY
     Route: 065
  2. CETIRIZINE HCL [Suspect]
     Indication: SINUS DISORDER
     Dosage: 10MG PER DAY
     Route: 048
     Dates: start: 20070101
  3. OXCARBAZEPINE [Suspect]
     Indication: EPILEPSY
     Route: 065

REACTIONS (2)
  - CONVULSION [None]
  - DRUG INTERACTION [None]
